FAERS Safety Report 7442881-3 (Version None)
Quarter: 2011Q2

REPORT INFORMATION
  Report Type: 
  Country: None (occurrence: None)
  Receive Date: 20110428
  Receipt Date: 20110419
  Transmission Date: 20111010
  Serious: Yes (Hospitalization)
  Sender: FDA-Public Use
  Company Number: US-ASTRAZENECA-2010SE46851

PATIENT
  Age: 52 Year
  Sex: Female
  Weight: 101.2 kg

DRUGS (23)
  1. KLONOPIN [Concomitant]
     Indication: ANXIETY
  2. PROZAC [Concomitant]
     Indication: DEPRESSION
  3. ASPIRIN [Concomitant]
     Indication: CARDIAC DISORDER
  4. METHYLDOPA [Concomitant]
     Indication: COUGH
     Dosage: 1-2 TSP Q4-6H
  5. TRAZODONE HCL [Concomitant]
  6. VITAMIN D [Concomitant]
  7. LASIX [Concomitant]
  8. TRAMADOL HCL [Concomitant]
  9. DONNATAL [Concomitant]
     Indication: IRRITABLE BOWEL SYNDROME
  10. SEROQUEL XR [Suspect]
     Indication: NERVOUSNESS
     Route: 048
     Dates: start: 20090101
  11. OXYCODONE [Concomitant]
  12. DECADRON [Concomitant]
  13. LISINOPRIL [Suspect]
     Indication: BLOOD PRESSURE ABNORMAL
     Route: 048
  14. LIVATALOL [Concomitant]
     Indication: BLOOD CHOLESTEROL ABNORMAL
  15. TOPROL-XL [Suspect]
     Indication: HYPERTENSION
     Route: 048
  16. LABETALOL [Concomitant]
     Indication: BLOOD PRESSURE ABNORMAL
  17. EMLODAPINE [Concomitant]
     Indication: BLOOD PRESSURE ABNORMAL
  18. MYROPEX [Concomitant]
     Indication: RESTLESS LEGS SYNDROME
  19. NEXIUM [Suspect]
     Route: 048
  20. SEROQUEL XR [Suspect]
     Indication: SLEEP DISORDER
     Route: 048
     Dates: start: 20090101
  21. CRESTOR [Suspect]
     Route: 048
  22. ZOFRAN [Concomitant]
     Indication: NAUSEA
  23. DOXYCYCLINE [Concomitant]
     Indication: ANTIBIOTIC THERAPY

REACTIONS (11)
  - INSOMNIA [None]
  - HYPERTENSION [None]
  - HEADACHE [None]
  - NAUSEA [None]
  - DIARRHOEA [None]
  - DRUG DOSE OMISSION [None]
  - BRONCHITIS [None]
  - WEIGHT DECREASED [None]
  - PAIN IN EXTREMITY [None]
  - DRUG INEFFECTIVE [None]
  - CHEST PAIN [None]
